FAERS Safety Report 7154089-X (Version None)
Quarter: 2010Q4

REPORT INFORMATION
  Report Type: 
  Country: None (occurrence: None)
  Receive Date: 20101124
  Receipt Date: 20101109
  Transmission Date: 20110411
  Serious: Yes (Life-Threatening, Hospitalization)
  Sender: FDA-Public Use
  Company Number: AUR-APL-2010-02793

PATIENT
  Age: 71 Year
  Sex: Female

DRUGS (5)
  1. METFORMIN HCL [Suspect]
  2. GLICLAZIDE [Concomitant]
  3. METOPROLOL TARTRATE [Concomitant]
  4. ATORVASTATIN [Concomitant]
  5. ASPIRIN [Concomitant]

REACTIONS (12)
  - BLOOD PRESSURE SYSTOLIC INCREASED [None]
  - BRADYCARDIA [None]
  - CARDIAC ARREST [None]
  - DEHYDRATION [None]
  - DRUG LEVEL INCREASED [None]
  - DYSPNOEA [None]
  - GASTROENTERITIS [None]
  - HAEMODIALYSIS [None]
  - HYPOGLYCAEMIA [None]
  - LACTIC ACIDOSIS [None]
  - RENAL FAILURE ACUTE [None]
  - RESPIRATORY RATE INCREASED [None]
